FAERS Safety Report 9210585 (Version 1)
Quarter: 2013Q2

REPORT INFORMATION
  Report Type: Spontaneous
  Country: IT (occurrence: IT)
  Receive Date: 20130404
  Receipt Date: 20130404
  Transmission Date: 20140414
  Serious: Yes (Death, Other)
  Sender: FDA-Public Use
  Company Number: IT-BAXTER-2013BAX011896

PATIENT
  Age: 46 Year
  Sex: Male

DRUGS (2)
  1. ENDOXAN BAXTER [Suspect]
     Indication: ACUTE MYELOID LEUKAEMIA
     Route: 065
  2. BUSULFAN [Suspect]
     Indication: ACUTE MYELOID LEUKAEMIA
     Route: 065

REACTIONS (4)
  - Sepsis [Fatal]
  - Leukaemia recurrent [Unknown]
  - Pyrexia [Unknown]
  - Lung infection [Unknown]
